FAERS Safety Report 10180436 (Version 1)
Quarter: 2014Q2

REPORT INFORMATION
  Report Type: Spontaneous
  Country: US (occurrence: US)
  Receive Date: 20140519
  Receipt Date: 20140519
  Transmission Date: 20141212
  Serious: No
  Sender: FDA-Public Use
  Company Number: US-AMGEN INC.-USASP2013090972

PATIENT
  Sex: Female

DRUGS (4)
  1. PROLIA [Suspect]
     Indication: OSTEOPOROSIS POSTMENOPAUSAL
     Dosage: UNK UNK, Q6MO
     Route: 065
     Dates: start: 20131224
  2. CALCIUM WITH VITAMIN D             /00944201/ [Concomitant]
     Dosage: 600 MG, QD
  3. VITAMIN D3 [Concomitant]
     Dosage: 2000 IU, QD
  4. CENTRUM                            /02217401/ [Concomitant]
     Dosage: 800 IU VITAMIN D AND CALCIUM 500MG, QD

REACTIONS (9)
  - Injection site pain [Recovered/Resolved]
  - Dry mouth [Not Recovered/Not Resolved]
  - Pain [Recovering/Resolving]
  - Feeling cold [Recovering/Resolving]
  - Muscle spasms [Recovering/Resolving]
  - Feeling hot [Recovering/Resolving]
  - Vomiting [Recovering/Resolving]
  - Nausea [Recovered/Resolved]
  - Asthenia [Not Recovered/Not Resolved]
